FAERS Safety Report 16300299 (Version 2)
Quarter: 2019Q2

REPORT INFORMATION
  Report Type: Spontaneous
  Country: US (occurrence: US)
  Receive Date: 20190510
  Receipt Date: 20190515
  Transmission Date: 20190711
  Serious: No
  Sender: FDA-Public Use
  Company Number: US-IPSEN BIOPHARMACEUTICALS, INC.-2019-05572

PATIENT
  Age: 71 Year
  Sex: Male
  Weight: 75 kg

DRUGS (18)
  1. PLAVIX [Concomitant]
     Active Substance: CLOPIDOGREL BISULFATE
  2. LACTOBACILLUS ACIDOPHILUS [Concomitant]
     Active Substance: LACTOBACILLUS ACIDOPHILUS
  3. LIDOCAINE. [Concomitant]
     Active Substance: LIDOCAINE
  4. OXYCODONE [Concomitant]
     Active Substance: OXYCODONE
  5. ENALAPRIL [Concomitant]
     Active Substance: ENALAPRIL
  6. VITAMIN B6 [Concomitant]
     Active Substance: PYRIDOXINE HYDROCHLORIDE
  7. ONIVYDE [Suspect]
     Active Substance: IRINOTECAN HYDROCHLORIDE
     Indication: PANCREATIC CARCINOMA
     Dosage: 70 MG/M2 IV OR 129 MG FOR INFUSE OVER 90 MINUTES IN 500 ML D5W
     Route: 042
     Dates: start: 20190326, end: 20190326
  8. ASPIRIN. [Concomitant]
     Active Substance: ASPIRIN
  9. SERTRALINE [Concomitant]
     Active Substance: SERTRALINE HYDROCHLORIDE
  10. LEUCOVORIN. [Suspect]
     Active Substance: LEUCOVORIN
     Indication: PANCREATIC CARCINOMA
     Dosage: 760 MG OVER 2 HOURS IVRB
     Route: 042
  11. LOMOTIL [Concomitant]
     Active Substance: ATROPINE SULFATE\DIPHENOXYLATE HYDROCHLORIDE
     Dosage: (LOMOTIL 2.5-0.025 MG ORAL TABLET)
  12. FISH OIL [Concomitant]
     Active Substance: FISH OIL
  13. FLUOROURACIL. [Suspect]
     Active Substance: FLUOROURACIL
     Indication: PANCREATIC CARCINOMA
     Dosage: 4400 MG IV INFUSION OVER THE HOURS CADD PUMP
     Route: 042
  14. TYLENOL EXTRA STRENGTH [Concomitant]
     Active Substance: ACETAMINOPHEN
     Dosage: 1000 MG = 2 TAB (S)
  15. CARVEDILOL. [Concomitant]
     Active Substance: CARVEDILOL
  16. VITAMIN D3 [Concomitant]
     Active Substance: CHOLECALCIFEROL
  17. DIGOXIN. [Concomitant]
     Active Substance: DIGOXIN
     Dosage: (375 MCG = 1.5 TAB(S)
  18. AMBIEN [Concomitant]
     Active Substance: ZOLPIDEM TARTRATE

REACTIONS (3)
  - Drug ineffective [Unknown]
  - Product storage error [Unknown]
  - Inguinal hernia [Unknown]

NARRATIVE: CASE EVENT DATE: 20190326
